FAERS Safety Report 9761303 (Version 1)
Quarter: 2013Q4

REPORT INFORMATION
  Report Type: Spontaneous
  Country: IN (occurrence: None)
  Receive Date: 20131212
  Receipt Date: 20131212
  Transmission Date: 20140711
  Serious: Yes (Other)
  Sender: FDA-Public Use
  Company Number: AUR-APL-2013-10228

PATIENT
  Sex: Male

DRUGS (4)
  1. FLUOXETINE (FLUOXETINE) [Suspect]
     Dosage: STOPPED
  2. RISPERIDONE (RISPERIDONE) [Suspect]
     Dosage: STOPPED?
  3. FLUVOXAMINE (FLUVOXAMINE) [Suspect]
     Dosage: STOPPED
  4. HALOPERIDOL (HALOPERIDOL) (HALOPERIDOL) [Suspect]
     Dosage: STOPPED?

REACTIONS (5)
  - Sedation [None]
  - Depressed level of consciousness [None]
  - Treatment noncompliance [None]
  - Tic [None]
  - Condition aggravated [None]
